FAERS Safety Report 21380825 (Version 2)
Quarter: 2022Q4

REPORT INFORMATION
  Report Type: Spontaneous
  Country: US (occurrence: US)
  Receive Date: 20220927
  Receipt Date: 20221227
  Transmission Date: 20230113
  Serious: No
  Sender: FDA-Public Use
  Company Number: US-ASTELLAS-2022US024809

PATIENT
  Sex: Male

DRUGS (1)
  1. PADCEV [Suspect]
     Active Substance: ENFORTUMAB VEDOTIN-EJFV
     Indication: Bladder cancer
     Dosage: UNK, CYCLIC (DAYS 1, 8, AND 15 OF A 28 DAY CYCLE)
     Route: 065
     Dates: start: 202204

REACTIONS (1)
  - Anorectal discomfort [Not Recovered/Not Resolved]
